FAERS Safety Report 5353580-6 (Version None)
Quarter: 2007Q2

REPORT INFORMATION
  Report Type: 
  Country: None (occurrence: None)
  Receive Date: 20070608
  Receipt Date: 20070601
  Transmission Date: 20071010
  Serious: Yes (Hospitalization)
  Sender: FDA-Public Use
  Company Number: GXKR2007GB04789

PATIENT
  Age: 87 Year
  Sex: 0

DRUGS (8)
  1. ASPIRIN [Suspect]
     Dosage: 75 MG, QD, ORAL
     Route: 048
     Dates: end: 20070518
  2. AMLODIPNE (AMLODIPNE) [Concomitant]
  3. BENDROFLUMETHIAZIDE (BENDROFLUMETHIAZIDE) [Concomitant]
  4. ENOXAPARIN (ENOXAPARIN, HEPARIN-FRACTION) [Concomitant]
  5. GAVISCON [Concomitant]
  6. LATANOPROST [Concomitant]
  7. RANITIDINE [Concomitant]
  8. TIMOLOL MALEATE [Concomitant]

REACTIONS (3)
  - FALL [None]
  - HAEMATEMESIS [None]
  - REFLUX OESOPHAGITIS [None]
